FAERS Safety Report 15018919 (Version 2)
Quarter: 2018Q3

REPORT INFORMATION
  Report Type: Report from Study
  Country: US (occurrence: US)
  Receive Date: 20180616
  Receipt Date: 20180815
  Transmission Date: 20181010
  Serious: No
  Sender: FDA-Public Use
  Company Number: PHEH2018US023253

PATIENT
  Sex: Male

DRUGS (1)
  1. COSENTYX [Suspect]
     Active Substance: SECUKINUMAB
     Indication: PSORIATIC ARTHROPATHY
     Dosage: UNK
     Route: 058

REACTIONS (4)
  - Joint stiffness [Unknown]
  - Psoriatic arthropathy [Unknown]
  - Drug effect incomplete [Unknown]
  - Arthralgia [Unknown]
